FAERS Safety Report 7024221-7 (Version None)
Quarter: 2010Q4

REPORT INFORMATION
  Report Type: 
  Country: None (occurrence: None)
  Receive Date: 20101001
  Receipt Date: 20100922
  Transmission Date: 20110411
  Serious: Yes (Hospitalization)
  Sender: FDA-Public Use
  Company Number: JP-ROCHE-729703

PATIENT
  Age: 76 Year
  Sex: Female

DRUGS (3)
  1. AVASTIN [Suspect]
     Indication: LUNG ADENOCARCINOMA
     Route: 041
     Dates: start: 20100722, end: 20100902
  2. CARBOPLATIN [Concomitant]
     Dosage: DOSAGE IS UNCERTAIN.
     Route: 041
  3. PACLITAXEL [Concomitant]
     Dosage: DOSAGE IS UNCERTAIN.
     Route: 041

REACTIONS (1)
  - STRESS CARDIOMYOPATHY [None]
